FAERS Safety Report 6736725-2 (Version None)
Quarter: 2010Q2

REPORT INFORMATION
  Report Type: 
  Country: None (occurrence: None)
  Receive Date: 20100521
  Receipt Date: 20100512
  Transmission Date: 20101027
  Serious: Yes (Other)
  Sender: FDA-Public Use
  Company Number: US-JNJFOC-20100505341

PATIENT
  Age: 10 Year
  Sex: Female
  Weight: 29.48 kg

DRUGS (4)
  1. CHILDREN'S TYLENOL BUBBLEGUM BURST [Suspect]
  2. CHILDREN'S TYLENOL BUBBLEGUM BURST [Suspect]
     Indication: HEADACHE
  3. INSULIN [Concomitant]
     Indication: DIABETES MELLITUS
     Route: 050
  4. INSULIN [Concomitant]
     Route: 050

REACTIONS (2)
  - BLOOD GLUCOSE INCREASED [None]
  - PRODUCT QUALITY ISSUE [None]
